FAERS Safety Report 7112831-8 (Version None)
Quarter: 2010Q4

REPORT INFORMATION
  Report Type: 
  Country: None (occurrence: None)
  Receive Date: 20101119
  Receipt Date: 20101109
  Transmission Date: 20110411
  Serious: Yes (Hospitalization, Other)
  Sender: FDA-Public Use
  Company Number: US-JNJFOC-20101003374

PATIENT
  Sex: Female
  Weight: 38.78 kg

DRUGS (12)
  1. REMICADE [Suspect]
     Indication: CROHN'S DISEASE
     Route: 042
  2. REMICADE [Suspect]
     Dosage: 3RD INFUSION
     Route: 042
  3. REMICADE [Suspect]
     Route: 042
  4. PRILOSEC [Concomitant]
     Indication: GASTROOESOPHAGEAL REFLUX DISEASE
  5. AZATHIOPRINE [Concomitant]
     Indication: CROHN'S DISEASE
  6. ASACOL [Concomitant]
     Indication: CROHN'S DISEASE
  7. PREDNISONE [Concomitant]
     Indication: CROHN'S DISEASE
  8. VITAMIN TAB [Concomitant]
  9. OXYCODONE HCL [Concomitant]
     Dosage: 10-15 MG, TID-QID, 4 MONTHS
  10. BIRTH CONTROL PILL [Concomitant]
     Dosage: ^INTERMITTENTLY OVER LAST YEAR^
  11. SERTRALINE HYDROCHLORIDE [Concomitant]
     Indication: ANXIETY
     Dosage: ^3 TO 4 MONTHS^
  12. SERTRALINE HYDROCHLORIDE [Concomitant]
     Indication: DEPRESSION
     Dosage: ^3 TO 4 MONTHS^

REACTIONS (3)
  - CEREBROVASCULAR SPASM [None]
  - ISCHAEMIC STROKE [None]
  - VENOUS THROMBOSIS [None]
